FAERS Safety Report 6646687-4 (Version None)
Quarter: 2010Q1

REPORT INFORMATION
  Report Type: 
  Country: None (occurrence: None)
  Receive Date: 20100323
  Receipt Date: 20100311
  Transmission Date: 20100710
  Serious: Yes (Disabling)
  Sender: FDA-Public Use
  Company Number: DK-BRACCO-000044

PATIENT
  Sex: Male
  Weight: 69 kg

DRUGS (6)
  1. CALCIUM CARBONATE [Concomitant]
     Indication: HYPERPHOSPHATASAEMIA
     Route: 048
  2. TRIATEC [Concomitant]
     Indication: HYPERTENSION
     Route: 048
  3. ETALPHA [Concomitant]
     Indication: VITAMIN D DEFICIENCY
     Route: 048
  4. SODIUM POLYSTYRENE SULFONATE [Concomitant]
     Indication: HYPERKALAEMIA
     Route: 048
  5. SOTALOL [Concomitant]
     Indication: ARRHYTHMIA
     Route: 048
  6. CONTRAST MEDIA [Suspect]
     Indication: ANGIOGRAM
     Route: 042
     Dates: start: 20030311, end: 20030311

REACTIONS (1)
  - NEPHROGENIC SYSTEMIC FIBROSIS [None]
